FAERS Safety Report 5578885-5 (Version None)
Quarter: 2007Q4

REPORT INFORMATION
  Report Type: 
  Country: None (occurrence: None)
  Receive Date: 20071228
  Receipt Date: 20071217
  Transmission Date: 20080405
  Serious: Yes (Death)
  Sender: FDA-Public Use
  Company Number: 2007US003132

PATIENT

DRUGS (5)
  1. PROGRAF [Suspect]
     Indication: LIVER TRANSPLANT
  2. MYCOPHENOLATE MOFETIL [Suspect]
     Indication: LIVER TRANSPLANT
  3. CYCLOSPORINE [Suspect]
     Indication: LIVER TRANSPLANT
  4. SIROLIMUS(SIROLIMUS) [Suspect]
     Indication: LIVER TRANSPLANT
  5. CORTICOSTEROIDS [Suspect]
     Indication: LIVER TRANSPLANT

REACTIONS (1)
  - BACTERIAL INFECTION [None]
